FAERS Safety Report 4972929-7 (Version None)
Quarter: 2006Q2

REPORT INFORMATION
  Report Type: 
  Country: None (occurrence: None)
  Receive Date: 20060410
  Receipt Date: 20060320
  Transmission Date: 20061013
  Serious: Yes (Life-Threatening, Hospitalization)
  Sender: FDA-Public Use
  Company Number: US200603000900

PATIENT
  Age: 67 Year
  Sex: Female
  Weight: 71.7 kg

DRUGS (6)
  1. GEMCITABINE HYDROCHLORIDE (GEMCITABINE HYDROCHLORIDE) VIAL) [Suspect]
     Indication: NON-SMALL CELL LUNG CANCER
     Dosage: 1690 MG, OTHER, INTRAVENOUS
     Route: 042
     Dates: start: 20051209
  2. CARBOPLATIN [Suspect]
     Indication: NON-SMALL CELL LUNG CANCER
     Dosage: 408 MG, OTHER, INTRAVENOUS
     Route: 042
     Dates: start: 20051209
  3. TYLENOL W/ CODEINE [Concomitant]
  4. COMPAZINE [Concomitant]
  5. ARANESP [Concomitant]
  6. PALONOSETRON HYDROCHLORIDE (PALONOSETRON HYDROCHLORIDE) [Concomitant]

REACTIONS (18)
  - AORTIC ANEURYSM [None]
  - CHEST PAIN [None]
  - CHOLELITHIASIS [None]
  - DYSPNOEA [None]
  - EPISTAXIS [None]
  - FATIGUE [None]
  - HAEMOPTYSIS [None]
  - HYPERBILIRUBINAEMIA [None]
  - HYPOKALAEMIA [None]
  - LUNG INFECTION [None]
  - MALNUTRITION [None]
  - METASTATIC NEOPLASM [None]
  - OEDEMA [None]
  - OEDEMA PERIPHERAL [None]
  - OSTEOLYSIS [None]
  - PANCYTOPENIA [None]
  - POST PROCEDURAL COMPLICATION [None]
  - WEIGHT INCREASED [None]
